FAERS Safety Report 9729036 (Version 1)
Quarter: 2013Q4

REPORT INFORMATION
  Report Type: Spontaneous
  Country: US (occurrence: US)
  Receive Date: 20131204
  Receipt Date: 20131204
  Transmission Date: 20140711
  Serious: Yes (Hospitalization)
  Sender: FDA-Public Use
  Company Number: US-BAYER-2013-144973

PATIENT
  Age: 21 Year
  Sex: Female

DRUGS (5)
  1. YAZ [Suspect]
  2. DOXYCYCLINE [Concomitant]
     Indication: INFECTION
     Dosage: UNK
     Route: 048
     Dates: start: 20090109
  3. IBUPROFEN [Concomitant]
     Dosage: UNK
     Route: 048
     Dates: start: 20090109
  4. LEVAQUIN [Concomitant]
     Route: 048
  5. VICODIN [Concomitant]
     Indication: PAIN

REACTIONS (3)
  - Cholelithiasis [None]
  - Pulmonary embolism [Recovered/Resolved]
  - Pulmonary infarction [None]
